FAERS Safety Report 4995329-2 (Version None)
Quarter: 2006Q2

REPORT INFORMATION
  Report Type: 
  Country: None (occurrence: None)
  Receive Date: 20060503
  Receipt Date: 20060417
  Transmission Date: 20061013
  Serious: Yes (Hospitalization)
  Sender: FDA-Public Use
  Company Number: CAR_0064_2006

PATIENT
  Age: 72 Year
  Sex: Male

DRUGS (8)
  1. DICLOFENAC SODIUM [Suspect]
     Indication: PLANTAR FASCIITIS
     Dosage: 75 MG BID PO
     Route: 048
     Dates: start: 20060414, end: 20060415
  2. MEDROL [Suspect]
     Indication: PLANTAR FASCIITIS
     Dosage: 4 MG 6XD PO
     Route: 048
     Dates: start: 20060407, end: 20060407
  3. MEDROL [Suspect]
     Indication: PLANTAR FASCIITIS
     Dosage: 4 MG 5XD PO
     Route: 048
     Dates: start: 20060408, end: 20060408
  4. MEDROL [Suspect]
     Indication: PLANTAR FASCIITIS
     Dosage: 4 MG QID PO
     Route: 048
     Dates: start: 20060409, end: 20060409
  5. MEDROL [Suspect]
     Indication: PLANTAR FASCIITIS
     Dosage: 4 MG TID PO
     Route: 048
     Dates: start: 20060410, end: 20060410
  6. MEDROL [Suspect]
     Indication: PLANTAR FASCIITIS
     Dosage: 4 MG BID PO
     Route: 048
     Dates: start: 20060411, end: 20060411
  7. MEDROL [Suspect]
     Indication: PLANTAR FASCIITIS
     Dosage: 4 MG QDAY PO
     Route: 048
     Dates: start: 20060412, end: 20060412
  8. FOSAMAX [Concomitant]

REACTIONS (1)
  - ISCHAEMIC STROKE [None]
